FAERS Safety Report 15191905 (Version 6)
Quarter: 2018Q3

REPORT INFORMATION
  Report Type: Spontaneous
  Country: US (occurrence: US)
  Receive Date: 20180724
  Receipt Date: 20180919
  Transmission Date: 20181010
  Serious: Yes (Other)
  Sender: FDA-Public Use
  Company Number: US-PFIZER INC-2018293962

PATIENT
  Age: 50 Year
  Sex: Male

DRUGS (7)
  1. ETRAVIRINE [Concomitant]
     Active Substance: ETRAVIRINE
     Dosage: 200 MG, UNK
  2. DARUNAVIR [Concomitant]
     Active Substance: DARUNAVIR
     Dosage: 600 MG, UNK
  3. TENOFOVIR [Concomitant]
     Active Substance: TENOFOVIR
     Dosage: 25 MG, UNK
  4. CEFAZOLIN [Concomitant]
     Active Substance: CEFAZOLIN
     Dosage: UNK
  5. RITONAVIR. [Concomitant]
     Active Substance: RITONAVIR
     Dosage: 100 MG, UNK
  6. FLUCONAZOLE. [Suspect]
     Active Substance: FLUCONAZOLE
     Dosage: 100 MG, DAILY (ON HOSPITAL DAY 8)
  7. FLUCONAZOLE. [Suspect]
     Active Substance: FLUCONAZOLE
     Indication: ORAL CANDIDIASIS
     Dosage: 200 MG, SINGLE (ONE DOSE) (ON HOSPITAL DAY 8)

REACTIONS (2)
  - Cortisol abnormal [Recovering/Resolving]
  - Adrenal suppression [Recovering/Resolving]
